FAERS Safety Report 15498285 (Version 2)
Quarter: 2018Q4

REPORT INFORMATION
  Report Type: Spontaneous
  Country: CL (occurrence: CL)
  Receive Date: 20181015
  Receipt Date: 20181022
  Transmission Date: 20190205
  Serious: Yes (Death, Life-Threatening, Hospitalization, Other)
  Sender: FDA-Public Use
  Company Number: CL-MYLANLABS-2018M1074304

PATIENT
  Age: 62 Year
  Sex: Female

DRUGS (2)
  1. CHLORPROMAZINE. [Concomitant]
     Active Substance: CHLORPROMAZINE
     Indication: PRODUCT USED FOR UNKNOWN INDICATION
     Dosage: 1.5 G, UNK
     Route: 048
     Dates: start: 201702
  2. BUPROPION. [Suspect]
     Active Substance: BUPROPION
     Indication: PRODUCT USED FOR UNKNOWN INDICATION
     Dosage: MORE THAN 60 TABLETS
     Route: 048
     Dates: start: 201702

REACTIONS (19)
  - Myoclonus [Recovered/Resolved]
  - Coma [Fatal]
  - Seizure [Unknown]
  - Dyskinesia [Unknown]
  - Hypotonia [Unknown]
  - Cardio-respiratory arrest [Recovered/Resolved]
  - Cerebral atrophy [Fatal]
  - Tachycardia [Unknown]
  - Extensor plantar response [Unknown]
  - Intentional overdose [Fatal]
  - Hypoxic-ischaemic encephalopathy [Fatal]
  - Hypoxia [Unknown]
  - Completed suicide [Fatal]
  - Electrocardiogram QT prolonged [Unknown]
  - Hypotension [Unknown]
  - Gaze palsy [Unknown]
  - Hypertonia [Unknown]
  - Toxicity to various agents [Fatal]
  - Hyperreflexia [Unknown]
